FAERS Safety Report 5900580-0 (Version None)
Quarter: 2008Q3

REPORT INFORMATION
  Report Type: 
  Country: None (occurrence: None)
  Receive Date: 20080926
  Receipt Date: 20080915
  Transmission Date: 20090109
  Serious: Yes (Hospitalization, Other)
  Sender: FDA-Public Use
  Company Number: FR-PFIZER INC-2008073591

PATIENT
  Sex: Male
  Weight: 89 kg

DRUGS (6)
  1. SUTENT [Suspect]
     Indication: RENAL CANCER METASTATIC
     Dates: end: 20080816
  2. ACETYLSALICYLATE LYSINE [Interacting]
     Indication: ANTICOAGULANT THERAPY
     Route: 048
     Dates: start: 20060101
  3. FLUINDIONE [Interacting]
     Indication: ANTICOAGULANT THERAPY
     Dosage: FREQ:1 TABLET DAILY: EVERY DAY
     Route: 048
     Dates: start: 20060101
  4. TRIPTORELIN [Concomitant]
     Route: 042
     Dates: start: 20080701
  5. ACETAMINOPHEN [Concomitant]
     Route: 048
     Dates: start: 20080715
  6. BICALUTAMIDE [Concomitant]
     Indication: ANTICOAGULANT THERAPY
     Route: 048
     Dates: start: 20080701

REACTIONS (5)
  - DRUG INTERACTION [None]
  - EPISTAXIS [None]
  - GINGIVAL BLEEDING [None]
  - MELAENA [None]
  - THROMBOCYTOPENIA [None]
